FAERS Safety Report 8515498-7 (Version None)
Quarter: 2012Q3

REPORT INFORMATION
  Report Type: 
  Country: None (occurrence: None)
  Receive Date: 20120717
  Receipt Date: 20120712
  Transmission Date: 20120928
  Serious: Yes (Hospitalization)
  Sender: FDA-Public Use
  Company Number: FR-TEVA-347457USA

PATIENT
  Sex: Female
  Weight: 58.7 kg

DRUGS (17)
  1. ZOLPIDEM [Concomitant]
     Dates: start: 20120618, end: 20120624
  2. TREANDA [Suspect]
     Indication: MANTLE CELL LYMPHOMA
     Dosage: 147.6 MILLIGRAM;
     Route: 042
     Dates: start: 20120614, end: 20120615
  3. MABTHERA [Suspect]
     Indication: MANTLE CELL LYMPHOMA
     Route: 041
     Dates: start: 20120614
  4. GLUCOPHAGE [Concomitant]
     Indication: TYPE 2 DIABETES MELLITUS
     Dosage: 2000 MILLIGRAM;
     Route: 048
     Dates: start: 20070101
  5. POTASSIUM CHLORIDE [Concomitant]
     Indication: HYPOKALAEMIA
     Dosage: 600 MILLIGRAM;
     Route: 048
     Dates: start: 20070101
  6. SOTALOL HCL [Concomitant]
     Indication: TACHYCARDIA
     Route: 048
     Dates: start: 20070101, end: 20120624
  7. ZOLPIDEM [Concomitant]
     Indication: INSOMNIA
     Dosage: 10 MILLIGRAM;
     Route: 048
     Dates: start: 20120618, end: 20120624
  8. SOTALOL HCL [Concomitant]
     Dates: start: 20070101, end: 20120624
  9. VALACYCLOVIR HYDROCHLORIDE [Concomitant]
     Dates: start: 20120618, end: 20120624
  10. BACTRIM [Concomitant]
     Indication: PNEUMOCYSTIS JIROVECI PNEUMONIA
     Route: 048
     Dates: start: 20120618, end: 20120624
  11. VELCADE [Suspect]
     Indication: MANTLE CELL LYMPHOMA
     Route: 058
     Dates: start: 20120614
  12. DEXAMETHASONE [Suspect]
     Indication: MANTLE CELL LYMPHOMA
     Dosage: 40 MILLIGRAM;
     Route: 041
     Dates: start: 20120615
  13. ATORVASTATIN [Concomitant]
     Indication: HYPERCHOLESTEROLAEMIA
     Dosage: 10 MILLIGRAM;
     Route: 048
     Dates: start: 20070101
  14. GLIMEPIRIDE [Concomitant]
     Indication: TYPE 2 DIABETES MELLITUS
     Dosage: 1 MILLIGRAM;
     Dates: start: 20070101
  15. TRANDOLAPRIL [Concomitant]
     Indication: HYPERTENSION
     Dosage: 2 MILLIGRAM;
     Route: 048
     Dates: start: 20070101
  16. VALACYCLOVIR HYDROCHLORIDE [Concomitant]
     Indication: HERPES SIMPLEX
     Dosage: 1000 MILLIGRAM;
     Route: 048
     Dates: start: 20120618, end: 20120624
  17. BACTRIM [Concomitant]
     Dates: start: 20120618, end: 20120624

REACTIONS (2)
  - PYREXIA [None]
  - HYPOGLYCAEMIA [None]
